FAERS Safety Report 7370545-3 (Version None)
Quarter: 2011Q1

REPORT INFORMATION
  Report Type: 
  Country: None (occurrence: None)
  Receive Date: 20110323
  Receipt Date: 20110318
  Transmission Date: 20110831
  Serious: Yes (Other)
  Sender: FDA-Public Use
  Company Number: CA-BAYER-2011-024716

PATIENT

DRUGS (1)
  1. ALEVE [Suspect]

REACTIONS (4)
  - PRURITUS GENITAL [None]
  - LIP SWELLING [None]
  - PRURITUS [None]
  - URTICARIA [None]
